FAERS Safety Report 7844619-4 (Version None)
Quarter: 2011Q4

REPORT INFORMATION
  Report Type: 
  Country: None (occurrence: None)
  Receive Date: 20111014
  Receipt Date: 20111007
  Transmission Date: 20120403
  Serious: Yes (Hospitalization, Other)
  Sender: FDA-Public Use
  Company Number: 2011SP000219

PATIENT
  Age: 46 Year
  Sex: Female
  Weight: 146.5118 kg

DRUGS (6)
  1. METOPROLOL TARTRATE [Concomitant]
  2. HYDROCHLOROTHIAZIDE [Concomitant]
  3. GLIPIZIDE [Concomitant]
  4. NUVARING [Suspect]
     Indication: CONTRACEPTION
     Dosage: VAG
     Route: 067
     Dates: start: 20030801, end: 20090101
  5. METFORMIN HCL [Concomitant]
  6. LISINOPRIL [Concomitant]

REACTIONS (13)
  - ANAEMIA [None]
  - POOR QUALITY SLEEP [None]
  - DIABETES MELLITUS INADEQUATE CONTROL [None]
  - BLOOD TRIGLYCERIDES INCREASED [None]
  - BLOOD PRESSURE INCREASED [None]
  - TREATMENT NONCOMPLIANCE [None]
  - INTRACRANIAL ANEURYSM [None]
  - OTITIS MEDIA [None]
  - BLOOD PRESSURE INADEQUATELY CONTROLLED [None]
  - LEFT VENTRICULAR HYPERTROPHY [None]
  - VENTRICULAR EXTRASYSTOLES [None]
  - FATIGUE [None]
  - HYPERTENSIVE CRISIS [None]
